FAERS Safety Report 6756777-3 (Version None)
Quarter: 2010Q2

REPORT INFORMATION
  Report Type: 
  Country: None (occurrence: None)
  Receive Date: 20100524
  Receipt Date: 20100211
  Transmission Date: 20101027
  Serious: No
  Sender: FDA-Public Use
  Company Number: 006778

PATIENT
  Sex: Male

DRUGS (1)
  1. CIMZIA [Suspect]
     Indication: CROHN'S DISEASE
     Dosage: (SUBCUTANEOUS)
     Route: 058
     Dates: start: 20090801

REACTIONS (6)
  - AGEUSIA [None]
  - DECREASED APPETITE [None]
  - DIARRHOEA [None]
  - EATING DISORDER SYMPTOM [None]
  - FEELING ABNORMAL [None]
  - WEIGHT DECREASED [None]
